FAERS Safety Report 7592316-5 (Version None)
Quarter: 2011Q3

REPORT INFORMATION
  Report Type: 
  Country: None (occurrence: None)
  Receive Date: 20110705
  Receipt Date: 20110705
  Transmission Date: 20111222
  Serious: Yes (Other)
  Sender: FDA-Public Use
  Company Number: None

PATIENT
  Age: 44 Year
  Sex: Female
  Weight: 88.4514 kg

DRUGS (2)
  1. NYQUIL 15 MG VICKS [Suspect]
     Indication: SNEEZING
     Dosage: 2 TABLESPOONS ONCE PO
     Route: 048
     Dates: start: 20110629, end: 20110629
  2. NYQUIL 15 MG VICKS [Suspect]
     Indication: INSOMNIA
     Dosage: 2 TABLESPOONS ONCE PO
     Route: 048
     Dates: start: 20110629, end: 20110629

REACTIONS (3)
  - PRURITUS GENERALISED [None]
  - DYSPNOEA [None]
  - URTICARIA [None]
